FAERS Safety Report 7962493-2 (Version None)
Quarter: 2011Q4

REPORT INFORMATION
  Report Type: 
  Country: None (occurrence: None)
  Receive Date: 20111207
  Receipt Date: 20110517
  Transmission Date: 20120403
  Serious: Yes (Hospitalization)
  Sender: FDA-Public Use
  Company Number: US-GLAXOSMITHKLINE-A0928745A

PATIENT
  Age: 55 Year
  Sex: Male

DRUGS (1)
  1. AVANDIA [Suspect]
     Indication: DIABETES MELLITUS
     Route: 048
     Dates: start: 20001001, end: 20070501

REACTIONS (5)
  - DIAPHRAGMATIC PARALYSIS [None]
  - LUNG DISORDER [None]
  - AORTIC ARTERIOSCLEROSIS [None]
  - LEFT ATRIAL DILATATION [None]
  - CARDIAC FAILURE CONGESTIVE [None]
